FAERS Safety Report 4526535-9 (Version None)
Quarter: 2004Q4

REPORT INFORMATION
  Report Type: 
  Country: None (occurrence: None)
  Receive Date: 20041210
  Receipt Date: 20041206
  Transmission Date: 20050328
  Serious: Yes (Hospitalization)
  Sender: FDA-Public Use
  Company Number: 2004UW13405

PATIENT
  Age: 68 Year
  Sex: Male
  Weight: 83.0083 kg

DRUGS (7)
  1. IRESSA [Suspect]
     Indication: NON-SMALL CELL LUNG CANCER
     Dosage: 250 MG PO
     Route: 048
     Dates: start: 20040316
  2. COUMADIN [Concomitant]
  3. DILTIAZEM [Concomitant]
  4. MULTI-VITAMINS [Concomitant]
  5. CALCIUM [Concomitant]
  6. NIACIN [Concomitant]
  7. LANOXIN [Concomitant]

REACTIONS (7)
  - DYSPNOEA [None]
  - HAIR COLOUR CHANGES [None]
  - HAIR TEXTURE ABNORMAL [None]
  - MILIA [None]
  - PAIN OF SKIN [None]
  - PERICARDIAL EFFUSION [None]
  - PRURITUS [None]
